FAERS Safety Report 11187199 (Version 3)
Quarter: 2015Q4

REPORT INFORMATION
  Report Type: Spontaneous
  Country: US (occurrence: US)
  Receive Date: 20150615
  Receipt Date: 20151113
  Transmission Date: 20160304
  Serious: Yes (Hospitalization, Other)
  Sender: FDA-Public Use
  Company Number: US-JNJFOC-20150424141

PATIENT
  Age: 79 Year
  Sex: Female

DRUGS (2)
  1. ANTI HYPERTENSIVE [Concomitant]
     Indication: HYPERTENSION
  2. XARELTO [Suspect]
     Active Substance: RIVAROXABAN
     Indication: PRODUCT USED FOR UNKNOWN INDICATION
     Route: 048
     Dates: start: 20120501, end: 20120705

REACTIONS (2)
  - Upper gastrointestinal haemorrhage [Unknown]
  - Emotional distress [Unknown]

NARRATIVE: CASE EVENT DATE: 20120705
